FAERS Safety Report 18683212 (Version 1)
Quarter: 2020Q4

REPORT INFORMATION
  Report Type: Spontaneous
  Country: US (occurrence: US)
  Receive Date: 20201230
  Receipt Date: 20201230
  Transmission Date: 20210114
  Serious: No
  Sender: FDA-Public Use
  Company Number: US-BRISTOL-MYERS SQUIBB COMPANY-BMS-2020-112016

PATIENT
  Age: 49 Year
  Sex: Male
  Weight: 74.83 kg

DRUGS (2)
  1. ELIQUIS [Suspect]
     Active Substance: APIXABAN
     Indication: DEEP VEIN THROMBOSIS
  2. ELIQUIS [Suspect]
     Active Substance: APIXABAN
     Indication: PULMONARY EMBOLISM
     Dosage: 2.5 MILLIGRAM, BID
     Route: 048

REACTIONS (2)
  - Coagulation factor V level abnormal [Unknown]
  - Product dispensing error [Unknown]

NARRATIVE: CASE EVENT DATE: 20201228
